FAERS Safety Report 22898550 (Version 5)
Quarter: 2023Q4

REPORT INFORMATION
  Report Type: Report from Study
  Country: US (occurrence: US)
  Receive Date: 20230904
  Receipt Date: 20231031
  Transmission Date: 20240110
  Serious: Yes (Hospitalization, Other)
  Sender: FDA-Public Use
  Company Number: US-002147023-NVSC2022US094500

PATIENT
  Age: 48 Year
  Sex: Female
  Weight: 79.819 kg

DRUGS (31)
  1. TREPROSTINIL [Suspect]
     Active Substance: TREPROSTINIL
     Dosage: UNK
     Route: 065
  2. TREPROSTINIL [Suspect]
     Active Substance: TREPROSTINIL
     Indication: Pulmonary arterial hypertension
     Dosage: 87 NG/KG/MIN, CONT, (STRENGTH 5 MG/ML)
     Route: 042
     Dates: start: 20190813
  3. TREPROSTINIL [Suspect]
     Active Substance: TREPROSTINIL
     Dosage: 87 NG/KG/MIN, CONT, (STRENGTH 5 MG/ML)
     Route: 042
     Dates: start: 20190813
  4. TREPROSTINIL [Suspect]
     Active Substance: TREPROSTINIL
     Dosage: 97 NG/KG/ MIN, CONT, (STRENGTH 1 MG/ML)
     Route: 042
  5. TREPROSTINIL [Suspect]
     Active Substance: TREPROSTINIL
     Dosage: 97 NG/KG/ MIN, CONT, (STRENGTH 1 MG/ML)
     Route: 042
  6. TREPROSTINIL [Suspect]
     Active Substance: TREPROSTINIL
     Dosage: 97 NG/KG/ MIN CONT, (STRENGTH 1 MG/ML)
     Route: 042
     Dates: start: 20210325
  7. TREPROSTINIL [Suspect]
     Active Substance: TREPROSTINIL
     Dosage: 97 NG/KG/ MIN CONT, (STRENGTH 1 MG/ML)
     Route: 042
     Dates: start: 20210325
  8. TREPROSTINIL [Suspect]
     Active Substance: TREPROSTINIL
     Dosage: 97 NG/KG/ MIN CONT, (STRENGTH 1 MG/ML)
     Route: 042
  9. TREPROSTINIL [Suspect]
     Active Substance: TREPROSTINIL
     Dosage: 97 NG/KG/ MIN CONT, (STRENGTH 1 MG/ML)
     Route: 042
  10. TREPROSTINIL [Suspect]
     Active Substance: TREPROSTINIL
     Dosage: 97 NG/KG/MIN
     Route: 042
  11. TREPROSTINIL [Suspect]
     Active Substance: TREPROSTINIL
     Dosage: 107 NG/KG/MIN CONT, (STRENGTH 1 MG/ML)
     Route: 058
  12. TREPROSTINIL [Suspect]
     Active Substance: TREPROSTINIL
     Dosage: 111 NG/KG/MIN CONT, (STRENGTH 1 MG/ML)
     Route: 042
  13. TREPROSTINIL [Suspect]
     Active Substance: TREPROSTINIL
     Dosage: 111 NG/KG/MIN CONT, (STRENGTH 1 MG/ML)
     Route: 042
  14. TREPROSTINIL [Suspect]
     Active Substance: TREPROSTINIL
     Dosage: 111 NG/KG/MIN CONT, (STRENGTH 1 MG/ML)
     Route: 042
     Dates: start: 20210325
  15. TREPROSTINIL [Suspect]
     Active Substance: TREPROSTINIL
     Dosage: 111 NG/KG/MIN CONT, (STRENGTH 1 MG/ML)
     Route: 042
     Dates: start: 20210325
  16. TREPROSTINIL [Suspect]
     Active Substance: TREPROSTINIL
     Dosage: 111 NG/KG/MIN CONT, (STRENGTH 1 MG/ML)
     Route: 042
  17. TREPROSTINIL [Suspect]
     Active Substance: TREPROSTINIL
     Dosage: 111 NG/KG/MIN CONT, (STRENGTH 1 MG/ML)
     Route: 042
  18. TREPROSTINIL [Suspect]
     Active Substance: TREPROSTINIL
     Dosage: 111 NG/KG/MIN CONT, (STRENGTH 1 MG/ML)
     Route: 058
  19. TREPROSTINIL [Suspect]
     Active Substance: TREPROSTINIL
     Dosage: 111 NG/KG/MIN, CONT (STRENGTH: 1 MG/ML)
     Route: 042
     Dates: start: 20190813
  20. TREPROSTINIL [Suspect]
     Active Substance: TREPROSTINIL
     Dosage: 111 NG/KG/MIN, CONT (STRENGTH: 1 MG/ML)
     Route: 042
     Dates: start: 20190813
  21. TREPROSTINIL [Suspect]
     Active Substance: TREPROSTINIL
     Dosage: UNK UNK, CONT (111 NG/KG/MIN)
     Route: 042
     Dates: start: 20190813
  22. TREPROSTINIL [Suspect]
     Active Substance: TREPROSTINIL
     Dosage: 111 NG/KG/MIN,CONTINUOUS
     Route: 042
     Dates: start: 20210325
  23. TREPROSTINIL [Suspect]
     Active Substance: TREPROSTINIL
     Dosage: 111 NG/KG/MIN
     Route: 042
     Dates: start: 20190813
  24. TREPROSTINIL [Suspect]
     Active Substance: TREPROSTINIL
     Dosage: UNK
     Route: 058
     Dates: start: 20210325
  25. TREPROSTINIL [Suspect]
     Active Substance: TREPROSTINIL
     Dosage: 111 NG/KG/MIN
     Route: 042
     Dates: start: 20210325
  26. TREPROSTINIL [Suspect]
     Active Substance: TREPROSTINIL
     Dosage: UNK, CONT,111 NG/KG/M I N,STRENGTH ^^1MG/ML^^
     Route: 042
     Dates: start: 20190813
  27. TREPROSTINIL [Suspect]
     Active Substance: TREPROSTINIL
     Dosage: UNK
     Route: 065
  28. TADALAFIL [Concomitant]
     Active Substance: TADALAFIL
     Dosage: UNK, STRENGTH 10MG
     Route: 065
  29. TADALAFIL [Concomitant]
     Active Substance: TADALAFIL
     Indication: Product used for unknown indication
     Dosage: UNK, STRENGTH 2.5MG
     Route: 065
  30. TADALAFIL [Concomitant]
     Active Substance: TADALAFIL
     Dosage: UNK, STRENGTH 20MG
     Route: 065
  31. TADALAFIL [Concomitant]
     Active Substance: TADALAFIL
     Dosage: UNK, STRENGTH 5MG
     Route: 065

REACTIONS (20)
  - Migraine [Unknown]
  - Dyspnoea [Unknown]
  - Headache [Not Recovered/Not Resolved]
  - Chest pain [Unknown]
  - Abdominal pain upper [Unknown]
  - Dyspnoea [Unknown]
  - Pyrexia [Unknown]
  - Sepsis [Unknown]
  - Complication associated with device [Unknown]
  - Gait disturbance [Unknown]
  - General physical health deterioration [Unknown]
  - Eye infection [Recovering/Resolving]
  - Malaise [Unknown]
  - Feeling abnormal [Unknown]
  - Hypersomnia [Unknown]
  - Eating disorder [Unknown]
  - Memory impairment [Unknown]
  - Arthralgia [Not Recovered/Not Resolved]
  - Fatigue [Unknown]
  - Device occlusion [Unknown]

NARRATIVE: CASE EVENT DATE: 20230401
